FAERS Safety Report 10471370 (Version 1)
Quarter: 2014Q3

REPORT INFORMATION
  Report Type: Spontaneous
  Country: US (occurrence: US)
  Receive Date: 20140923
  Receipt Date: 20140923
  Transmission Date: 20150326
  Serious: Yes (Other)
  Sender: FDA-Public Use
  Company Number: US-PFIZER INC-2014261315

PATIENT
  Sex: Female

DRUGS (3)
  1. NARDIL [Suspect]
     Active Substance: PHENELZINE SULFATE
     Indication: DEPRESSION
     Dosage: UNK, 3X/DAY
     Dates: end: 2014
  2. NARDIL [Suspect]
     Active Substance: PHENELZINE SULFATE
     Dosage: UNK, 2X/DAY
     Dates: start: 2014, end: 2014
  3. NARDIL [Suspect]
     Active Substance: PHENELZINE SULFATE
     Dosage: UNK, 3X/DAY
     Dates: start: 2014

REACTIONS (4)
  - Loss of consciousness [Unknown]
  - Crying [Unknown]
  - Hypotension [Unknown]
  - Drug ineffective [Unknown]

NARRATIVE: CASE EVENT DATE: 2014
